FAERS Safety Report 5255412-3 (Version None)
Quarter: 2007Q1

REPORT INFORMATION
  Report Type: 
  Country: None (occurrence: None)
  Receive Date: 20070305
  Receipt Date: 20070227
  Transmission Date: 20070707
  Serious: Yes (Hospitalization, Other)
  Sender: FDA-Public Use
  Company Number: US-MERCK-0701USA00407

PATIENT
  Age: 58 Year
  Sex: Female
  Weight: 85 kg

DRUGS (4)
  1. ZETIA [Suspect]
     Indication: HYPERLIPIDAEMIA
     Route: 048
     Dates: start: 20060706, end: 20060101
  2. LIPITOR [Concomitant]
     Indication: LIPIDS INCREASED
     Route: 048
     Dates: start: 20041024, end: 20061201
  3. LEVOXYL [Concomitant]
     Indication: HYPOTHYROIDISM
     Route: 048
     Dates: start: 19950101
  4. PAXIL [Concomitant]
     Indication: MIGRAINE
     Route: 048
     Dates: start: 20030101

REACTIONS (5)
  - ARTHRALGIA [None]
  - JOINT EFFUSION [None]
  - PAIN IN EXTREMITY [None]
  - PYREXIA [None]
  - SYNOVIAL FLUID WHITE BLOOD CELLS POSITIVE [None]
